FAERS Safety Report 4537819-2 (Version None)
Quarter: 2004Q4

REPORT INFORMATION
  Report Type: 
  Country: None (occurrence: None)
  Receive Date: 20041224
  Receipt Date: 20041209
  Transmission Date: 20050328
  Serious: Yes (Life-Threatening, Hospitalization, Disabling)
  Sender: FDA-Public Use
  Company Number: US-MERCK-0412USA01171

PATIENT
  Age: 80 Year
  Sex: Female

DRUGS (2)
  1. VIOXX [Suspect]
     Indication: MONARTHRITIS
     Route: 048
     Dates: start: 20031120, end: 20031128
  2. PROPRANOLOL HYDROCHLORIDE [Concomitant]
     Route: 048

REACTIONS (9)
  - ADVERSE EVENT [None]
  - CARDIAC FAILURE CONGESTIVE [None]
  - FALL [None]
  - HEART RATE INCREASED [None]
  - HIP FRACTURE [None]
  - INJURY [None]
  - LOSS OF CONSCIOUSNESS [None]
  - MYOCARDIAL INFARCTION [None]
  - PAIN [None]
